FAERS Safety Report 8057406-1 (Version None)
Quarter: 2012Q1

REPORT INFORMATION
  Report Type: 
  Country: None (occurrence: None)
  Receive Date: 20120119
  Receipt Date: 20120109
  Transmission Date: 20120608
  Serious: Yes (Hospitalization, Other)
  Sender: FDA-Public Use
  Company Number: US-RB-035789-11

PATIENT
  Age: 61 Year
  Sex: Male

DRUGS (4)
  1. SUBOXONE [Suspect]
     Indication: DRUG DEPENDENCE
     Route: 060
     Dates: start: 20110101, end: 20110101
  2. SUBOXONE [Suspect]
     Dosage: VARIOUS DOSE, SELF TAPERING
     Route: 060
     Dates: start: 20110101, end: 20110101
  3. SUBOXONE [Suspect]
     Dosage: SELF TAPER TO 1/16 OF A 2 MG
     Route: 060
     Dates: start: 20110101
  4. SUBOXONE [Suspect]
     Indication: DRUG DEPENDENCE
     Route: 060
     Dates: start: 20110101, end: 20110101

REACTIONS (5)
  - INTESTINAL OBSTRUCTION [None]
  - WRONG TECHNIQUE IN DRUG USAGE PROCESS [None]
  - HEADACHE [None]
  - UNDERDOSE [None]
  - NAUSEA [None]
